FAERS Safety Report 5931642-X (Version None)
Quarter: 2008Q4

REPORT INFORMATION
  Report Type: 
  Country: None (occurrence: None)
  Receive Date: 20081027
  Receipt Date: 20081020
  Transmission Date: 20090506
  Serious: Yes (Death)
  Sender: FDA-Public Use
  Company Number: US-JNJFOC-20080105310

PATIENT
  Sex: Female
  Weight: 78.47 kg

DRUGS (5)
  1. ORTHO EVRA [Suspect]
     Indication: DRUG USE FOR UNKNOWN INDICATION
     Route: 062
  2. TUSSIONEX [Concomitant]
     Indication: COUGH
  3. PREDNISONE TAB [Concomitant]
  4. LEVAQUIN [Concomitant]
     Indication: COUGH
  5. PANNAZ [Concomitant]
     Route: 048

REACTIONS (1)
  - PULMONARY EMBOLISM [None]
